FAERS Safety Report 23150441 (Version 1)
Quarter: 2023Q4

REPORT INFORMATION
  Report Type: Report from Study
  Country: US (occurrence: US)
  Receive Date: 20231106
  Receipt Date: 20231106
  Transmission Date: 20240110
  Serious: Yes (Hospitalization, Other)
  Sender: FDA-Public Use
  Company Number: US-ABBVIE-5391644

PATIENT
  Sex: Male

DRUGS (1)
  1. CREON [Suspect]
     Active Substance: PANCRELIPASE AMYLASE\PANCRELIPASE LIPASE\PANCRELIPASE PROTEASE
     Indication: Pancreatic failure
     Dosage: 3-4 CAPSULES FOR?EACH MEAL AND 2 CAPSULES FOR EACH SNACK.
     Route: 048
     Dates: start: 20230721

REACTIONS (4)
  - Chemotherapy [Unknown]
  - Diarrhoea [Recovering/Resolving]
  - Flatulence [Unknown]
  - Hospitalisation [Recovered/Resolved]

NARRATIVE: CASE EVENT DATE: 20230101
